FAERS Safety Report 8263479-3 (Version None)
Quarter: 2012Q2

REPORT INFORMATION
  Report Type: 
  Country: None (occurrence: None)
  Receive Date: 20120405
  Receipt Date: 20120403
  Transmission Date: 20120825
  Serious: Yes (Life-Threatening, Hospitalization)
  Sender: FDA-Public Use
  Company Number: BE-EISAI INC-E2020-10605-SPO-BE

PATIENT
  Sex: Female

DRUGS (11)
  1. ARICEPT [Suspect]
     Indication: DEMENTIA ALZHEIMER'S TYPE
     Route: 048
     Dates: end: 20120101
  2. LYSOMUCIL [Concomitant]
     Indication: LUNG DISORDER
     Dates: start: 20120313
  3. BICLAR [Interacting]
     Indication: LUNG DISORDER
     Route: 048
     Dates: start: 20120313, end: 20120321
  4. MOTILIUM [Interacting]
     Indication: NAUSEA
     Route: 048
     Dates: start: 20120311
  5. LEXOTAN [Concomitant]
     Indication: INSOMNIA
  6. MEDROL [Concomitant]
  7. PARACODINE [Concomitant]
     Indication: COUGH
  8. ASPIRIN [Concomitant]
     Indication: CARDIOVASCULAR EVENT PROPHYLAXIS
  9. SCOPOLAMINE [Concomitant]
     Indication: ABDOMINAL PAIN
  10. ACETAMINOPHEN [Concomitant]
     Indication: PAIN
     Dates: start: 20120311
  11. PROTELOS [Concomitant]
     Indication: OSTEOPOROSIS

REACTIONS (3)
  - DRUG INTERACTION [None]
  - LOSS OF CONSCIOUSNESS [None]
  - TACHYARRHYTHMIA [None]
